FAERS Safety Report 4654883-0 (Version None)
Quarter: 2005Q2

REPORT INFORMATION
  Report Type: 
  Country: None (occurrence: None)
  Receive Date: 20050506
  Receipt Date: 20050503
  Transmission Date: 20051028
  Serious: Yes (Disabling)
  Sender: FDA-Public Use
  Company Number: US-MERCK-0505USA00499

PATIENT
  Age: 35 Year
  Sex: Male

DRUGS (2)
  1. FOSAMAX [Suspect]
     Indication: OSTEOPOROSIS
     Route: 048
     Dates: start: 20041230
  2. DIAZEPAM [Concomitant]
     Route: 065

REACTIONS (5)
  - ABDOMINAL PAIN UPPER [None]
  - GASTRITIS [None]
  - HEADACHE [None]
  - LEUKOPLAKIA ORAL [None]
  - NAUSEA [None]
